FAERS Safety Report 4830708-5 (Version None)
Quarter: 2005Q4

REPORT INFORMATION
  Report Type: 
  Country: None (occurrence: None)
  Receive Date: 20051114
  Receipt Date: 20051031
  Transmission Date: 20060501
  Serious: Yes (Death)
  Sender: FDA-Public Use
  Company Number: 2005-133913-NL

PATIENT
  Age: 51 Year
  Sex: Female

DRUGS (5)
  1. MIRTAZAPINE [Suspect]
  2. LORAZEPAM [Suspect]
  3. CHLORPROMAZINE [Suspect]
  4. ZOPICLONE [Suspect]
  5. ALCOHOL [Suspect]

REACTIONS (1)
  - OVERDOSE [None]
